FAERS Safety Report 6661976-5 (Version None)
Quarter: 2010Q1

REPORT INFORMATION
  Report Type: 
  Country: None (occurrence: None)
  Receive Date: 20100331
  Receipt Date: 20091113
  Transmission Date: 20100710
  Serious: Yes (Death, Hospitalization)
  Sender: FDA-Public Use
  Company Number: US-BRISTOL-MYERS SQUIBB COMPANY-14852529

PATIENT

DRUGS (1)
  1. ERBITUX [Suspect]

REACTIONS (2)
  - DEATH [None]
  - HYPERSENSITIVITY [None]
